FAERS Safety Report 11645981 (Version 1)
Quarter: 2015Q4

REPORT INFORMATION
  Report Type: Spontaneous
  Country: US (occurrence: US)
  Receive Date: 20151020
  Receipt Date: 20151020
  Transmission Date: 20160304
  Serious: No
  Sender: FDA-Public Use
  Company Number: US-ROCHE-1602488

PATIENT
  Sex: Female
  Weight: 56.52 kg

DRUGS (2)
  1. ESBRIET [Suspect]
     Active Substance: PIRFENIDONE
     Indication: IDIOPATHIC PULMONARY FIBROSIS
     Dosage: 3 CAPSULES PER DOSE
     Route: 048
     Dates: start: 20150501
  2. OFEV [Concomitant]
     Active Substance: NINTEDANIB

REACTIONS (6)
  - Swelling [Unknown]
  - Dysgeusia [Unknown]
  - Abdominal distension [Unknown]
  - Weight increased [Unknown]
  - Decreased appetite [Unknown]
  - Constipation [Unknown]
